FAERS Safety Report 7673248-0 (Version None)
Quarter: 2011Q3

REPORT INFORMATION
  Report Type: 
  Country: None (occurrence: None)
  Receive Date: 20110810
  Receipt Date: 20110808
  Transmission Date: 20111222
  Serious: Yes (Other)
  Sender: FDA-Public Use
  Company Number: US-PFIZER INC-2011181538

PATIENT
  Age: 52 Year
  Sex: Female

DRUGS (1)
  1. GABAPENTIN [Suspect]
     Indication: NEURALGIA
     Dosage: UNK
     Route: 048

REACTIONS (5)
  - DRUG DEPENDENCE [None]
  - WITHDRAWAL SYNDROME [None]
  - FIBROMYALGIA [None]
  - HYPERTENSION [None]
  - DRUG HYPERSENSITIVITY [None]
